FAERS Safety Report 23148419 (Version 1)
Quarter: 2023Q4

REPORT INFORMATION
  Report Type: Spontaneous
  Country: US (occurrence: US)
  Receive Date: 20231106
  Receipt Date: 20231106
  Transmission Date: 20240110
  Serious: No
  Sender: FDA-Public Use
  Company Number: US-PFIZER INC-202300352546

PATIENT
  Age: 82 Year
  Sex: Female
  Weight: 66.22 kg

DRUGS (1)
  1. PAXLOVID [Suspect]
     Active Substance: NIRMATRELVIR\RITONAVIR
     Indication: COVID-19
     Dosage: TWO TABLET AND THEN ONE TABLET TOGETHER BY MOUTH TWICE A DAY
     Route: 048
     Dates: start: 20231026, end: 20231026

REACTIONS (11)
  - Dysgeusia [Unknown]
  - Abdominal discomfort [Unknown]
  - Confusional state [Unknown]
  - Dizziness [Unknown]
  - Swollen tongue [Unknown]
  - Tongue discolouration [Unknown]
  - Feeding disorder [Unknown]
  - Dysphagia [Unknown]
  - Abdominal pain upper [Unknown]
  - Feeling abnormal [Unknown]
  - Illness [Unknown]
